FAERS Safety Report 11757403 (Version 2)
Quarter: 2016Q1

REPORT INFORMATION
  Report Type: Spontaneous
  Country: US (occurrence: US)
  Receive Date: 20151120
  Receipt Date: 20160201
  Transmission Date: 20160525
  Serious: Yes (Hospitalization, Other)
  Sender: FDA-Public Use
  Company Number: US-JNJFOC-20151111979

PATIENT
  Age: 49 Year
  Sex: Female
  Weight: 68 kg

DRUGS (10)
  1. NORCO [Suspect]
     Active Substance: ACETAMINOPHEN\HYDROCODONE BITARTRATE
     Indication: HEADACHE
     Dosage: 10 MG-325 MG, 1 TABLET EVERY 4 TO 6 HOURS.
     Route: 048
     Dates: start: 201311, end: 201311
  2. SOMA [Concomitant]
     Active Substance: CARISOPRODOL
     Indication: BACK PAIN
     Dosage: 2 TIMES PER DAY
     Route: 048
     Dates: start: 2011
  3. LAMOTRIGINE. [Concomitant]
     Active Substance: LAMOTRIGINE
     Indication: PRODUCT USED FOR UNKNOWN INDICATION
     Route: 065
     Dates: start: 2013
  4. SERTRALINE [Concomitant]
     Active Substance: SERTRALINE HYDROCHLORIDE
     Indication: PRODUCT USED FOR UNKNOWN INDICATION
     Route: 048
     Dates: start: 201311
  5. LORAZEPAM. [Concomitant]
     Active Substance: LORAZEPAM
     Indication: PRODUCT USED FOR UNKNOWN INDICATION
     Dosage: 3 TIMES PER DAY
     Route: 048
     Dates: start: 201311
  6. AMBIEN [Concomitant]
     Active Substance: ZOLPIDEM TARTRATE
     Indication: SLEEP DISORDER
     Route: 048
     Dates: start: 201311
  7. TYLENOL EXTRA STRENGTH [Suspect]
     Active Substance: ACETAMINOPHEN
     Indication: HEADACHE
     Dosage: 6 TO 8 TABLETS EVERY 4 TO 6 HOURS DAILY
     Route: 048
     Dates: start: 201310, end: 201311
  8. TYLENOL EXTRA STRENGTH [Suspect]
     Active Substance: ACETAMINOPHEN
     Indication: BACK PAIN
     Dosage: 6 TO 8 TABLETS EVERY 4 TO 6 HOURS DAILY
     Route: 048
     Dates: start: 201310, end: 201311
  9. NORCO [Suspect]
     Active Substance: ACETAMINOPHEN\HYDROCODONE BITARTRATE
     Indication: BACK PAIN
     Dosage: 10 MG-325 MG, 1 TABLET EVERY 4 TO 6 HOURS.
     Route: 048
     Dates: start: 201311, end: 201311
  10. DILANTIN [Concomitant]
     Active Substance: PHENYTOIN
     Indication: SEIZURE
     Dosage: 2 TIMES PER DAY
     Route: 048
     Dates: start: 201311

REACTIONS (7)
  - Acute hepatic failure [Recovering/Resolving]
  - Acute respiratory failure [Recovered/Resolved]
  - Hepatorenal syndrome [Recovering/Resolving]
  - Acute kidney injury [Recovering/Resolving]
  - Hepatic encephalopathy [Recovering/Resolving]
  - Toxicity to various agents [Recovering/Resolving]
  - Overdose [Recovering/Resolving]

NARRATIVE: CASE EVENT DATE: 201311
